FAERS Safety Report 4972268-4 (Version None)
Quarter: 2006Q1

REPORT INFORMATION
  Report Type: 
  Country: None (occurrence: None)
  Receive Date: 20060213
  Receipt Date: 20051104
  Transmission Date: 20060701
  Serious: No
  Sender: FDA-Public Use
  Company Number: 012003

PATIENT
  Age: 53 Year
  Sex: Female

DRUGS (29)
  1. PRIALT [Suspect]
     Indication: PAIN
     Dosage: SEE IMAGE
     Route: 037
     Dates: start: 20051005, end: 20051007
  2. PRIALT [Suspect]
     Indication: PAIN
     Dosage: SEE IMAGE
     Route: 037
     Dates: start: 20051007, end: 20051026
  3. DILAUDID [Concomitant]
  4. VOLTAREN [Concomitant]
  5. ZYRTEC [Concomitant]
  6. PREMARIN [Concomitant]
  7. WELLBUTRIN [Concomitant]
  8. NEXIUM [Concomitant]
  9. SYNTHROID [Concomitant]
  10. TESTOSTERONE [Concomitant]
  11. ACTONEL [Concomitant]
  12. BETAMETHASONE [Concomitant]
  13. PROVENTIL [Concomitant]
  14. FLOVENT [Concomitant]
  15. GABITRIL [Concomitant]
  16. OTHER CHOLESTEROL AND TRIGLYCERIDE REDUCERS [Concomitant]
  17. MAGNESIUM (MAGNESIUM) [Concomitant]
  18. CALCIUM (CALCIUM) [Concomitant]
  19. ALL OTHER THERAPEUTIC PRODUCTS [Concomitant]
  20. VITAMIN D [Concomitant]
  21. STOOL SOFTENER (DOCUSAE SODIUM) [Concomitant]
  22. COQ10 (UBIDECARENONE) [Concomitant]
  23. HERBAL PREPARATION [Concomitant]
  24. CONJUGATED LINOLEIC ACID (OIL) [Concomitant]
  25. FLEXERIL [Concomitant]
  26. VALIUM [Concomitant]
  27. MORPHINE [Concomitant]
  28. AVINZA [Concomitant]
  29. MVI (VITAMINS NOS) [Concomitant]

REACTIONS (27)
  - ACTIVITIES OF DAILY LIVING IMPAIRED [None]
  - AGEUSIA [None]
  - BLEPHAROSPASM [None]
  - BLOOD PRESSURE INCREASED [None]
  - DIFFICULTY IN WALKING [None]
  - DIZZINESS [None]
  - DRUG WITHDRAWAL SYNDROME [None]
  - DRY MOUTH [None]
  - DYSPNOEA [None]
  - EXOPHTHALMOS [None]
  - FEELING ABNORMAL [None]
  - HALLUCINATION [None]
  - HEART RATE INCREASED [None]
  - HYPERAESTHESIA [None]
  - HYPERSOMNIA [None]
  - HYPOAESTHESIA [None]
  - INCOHERENT [None]
  - MEMORY IMPAIRMENT [None]
  - MORBID THOUGHTS [None]
  - PAIN [None]
  - PERIPHERAL COLDNESS [None]
  - SOMNOLENCE [None]
  - SWELLING [None]
  - TREMOR [None]
  - URINARY HESITATION [None]
  - VERTIGO [None]
  - XANTHOPSIA [None]
